FAERS Safety Report 25831639 (Version 1)
Quarter: 2025Q3

REPORT INFORMATION
  Report Type: Spontaneous
  Country: US (occurrence: None)
  Receive Date: 20250921
  Receipt Date: 20250921
  Transmission Date: 20251021
  Serious: No
  Sender: FDA-CTU
  Company Number: None

PATIENT
  Sex: Female
  Weight: 60.75 kg

DRUGS (4)
  1. BOTOX [Suspect]
     Active Substance: ONABOTULINUMTOXINA
     Indication: Migraine
     Dates: start: 20250313
  2. RISPERIDONE [Concomitant]
     Active Substance: RISPERIDONE
  3. MOTRIN [Concomitant]
     Active Substance: IBUPROFEN
  4. TYLENOL [Concomitant]
     Active Substance: ACETAMINOPHEN

REACTIONS (10)
  - Neck pain [None]
  - Arthralgia [None]
  - Fall [None]
  - Tension headache [None]
  - Migraine [None]
  - Pain in extremity [None]
  - Pain in extremity [None]
  - Paraesthesia [None]
  - Brain fog [None]
  - Anxiety [None]
